FAERS Safety Report 10965144 (Version 1)
Quarter: 2015Q1

REPORT INFORMATION
  Report Type: Spontaneous
  Country: SE (occurrence: SE)
  Receive Date: 20150330
  Receipt Date: 20150330
  Transmission Date: 20150721
  Serious: Yes (Life-Threatening, Other)
  Sender: FDA-Public Use
  Company Number: SE-ROCHE-1556205

PATIENT
  Age: 23 Year
  Sex: Female

DRUGS (7)
  1. PLASMAPHERESIS [Concomitant]
     Indication: ENCEPHALITIS AUTOIMMUNE
  2. CYCLOPHOSPHAMIDE. [Concomitant]
     Active Substance: CYCLOPHOSPHAMIDE
  3. BORTEZOMIB [Concomitant]
     Active Substance: BORTEZOMIB
     Indication: ENCEPHALITIS AUTOIMMUNE
  4. RITUXIMAB [Suspect]
     Active Substance: RITUXIMAB
     Indication: ENCEPHALITIS AUTOIMMUNE
     Route: 065
  5. IMMUNOGLOBULIN [Suspect]
     Active Substance: HUMAN IMMUNOGLOBULIN G
     Indication: ENCEPHALITIS AUTOIMMUNE
     Route: 042
  6. RITUXIMAB [Suspect]
     Active Substance: RITUXIMAB
     Indication: ENCEPHALITIS AUTOIMMUNE
     Route: 037
  7. TOCILIZUMAB [Suspect]
     Active Substance: TOCILIZUMAB
     Indication: ENCEPHALITIS AUTOIMMUNE
     Route: 065

REACTIONS (4)
  - Disease progression [Recovering/Resolving]
  - Off label use [Unknown]
  - Cerebral atrophy [Unknown]
  - Electroencephalogram abnormal [Unknown]
